FAERS Safety Report 5680667-0 (Version None)
Quarter: 2008Q1

REPORT INFORMATION
  Report Type: 
  Country: None (occurrence: None)
  Receive Date: 20080326
  Receipt Date: 20070820
  Transmission Date: 20080703
  Serious: No
  Sender: FDA-Public Use
  Company Number: US-BAUSCH-2007BL002939

PATIENT
  Sex: Female

DRUGS (2)
  1. LOTEMAX [Suspect]
     Indication: KERATOCONJUNCTIVITIS SICCA
     Route: 047
     Dates: start: 20060820
  2. ARTIFICIAL TEARS [Concomitant]

REACTIONS (2)
  - DRUG HYPERSENSITIVITY [None]
  - EYE IRRITATION [None]
